FAERS Safety Report 9496352 (Version 1)
Quarter: 2013Q3

REPORT INFORMATION
  Report Type: Spontaneous
  Country: JP (occurrence: JP)
  Receive Date: 20130904
  Receipt Date: 20130904
  Transmission Date: 20140515
  Serious: Yes (Death, Other)
  Sender: FDA-Public Use
  Company Number: JP-009507513-1308JPN015243

PATIENT
  Age: 75 Year
  Sex: Male

DRUGS (7)
  1. DEXAMETHASONE [Suspect]
     Indication: NATURAL KILLER-CELL LYMPHOBLASTIC LYMPHOMA
     Route: 048
  2. METHOTREXATE [Suspect]
     Route: 065
  3. CYTARABINE [Suspect]
     Route: 065
  4. CYCLOPHOSPHAMIDE [Concomitant]
  5. DOXORUBICIN HYDROCHLORIDE [Concomitant]
     Route: 042
  6. VINCRISTINE SULFATE [Concomitant]
     Route: 042
  7. HORMONES (UNSPECIFIED) [Concomitant]
     Dosage: ADRENAL HORMONE PREPARATIONS

REACTIONS (2)
  - Sepsis [Fatal]
  - Pneumonia [Fatal]
